FAERS Safety Report 4486595-0 (Version None)
Quarter: 2004Q4

REPORT INFORMATION
  Report Type: 
  Country: None (occurrence: None)
  Receive Date: 20041027
  Receipt Date: 20030806
  Transmission Date: 20050328
  Serious: Yes (Hospitalization)
  Sender: FDA-Public Use
  Company Number: PHHO2003TR09946

PATIENT
  Sex: Male
  Weight: 60 kg

DRUGS (4)
  1. NEORAL [Suspect]
     Indication: RENAL TRANSPLANT
     Dosage: 250 MG/DAY
     Dates: start: 20020104
  2. NEORAL [Suspect]
     Dosage: 300 MG/DAY
     Route: 048
     Dates: start: 20011027, end: 20020125
  3. PREDNOL [Concomitant]
     Indication: RENAL TRANSPLANT
     Dosage: 4 MG/DAY
     Route: 048
     Dates: start: 20030120
  4. IMURAN [Concomitant]
     Dosage: 100 MG/DAY
     Route: 048
     Dates: start: 20020113

REACTIONS (1)
  - DIABETES MELLITUS [None]
